FAERS Safety Report 8950689 (Version 1)
Quarter: 2012Q4

REPORT INFORMATION
  Report Type: Spontaneous
  Country: IT (occurrence: None)
  Receive Date: 20121128
  Receipt Date: 20121128
  Transmission Date: 20130627
  Serious: Yes (Hospitalization)
  Sender: FDA-Public Use
  Company Number: INT_00155_2012

PATIENT
  Age: 85 Year
  Sex: Male

DRUGS (3)
  1. CEFTRIAXONE (CEFTRIAXONE) [Suspect]
     Indication: BRONCHITIS
     Route: 030
     Dates: start: 20120414, end: 20120423
  2. PAROXETINE [Concomitant]
  3. SPIRINOLACTONE [Concomitant]

REACTIONS (1)
  - Pancreatitis [None]
